FAERS Safety Report 5683364-0 (Version None)
Quarter: 2008Q1

REPORT INFORMATION
  Report Type: 
  Country: None (occurrence: None)
  Receive Date: 20080326
  Receipt Date: 20080317
  Transmission Date: 20080703
  Serious: Yes (Other)
  Sender: FDA-Public Use
  Company Number: CHNY2008DE01106

PATIENT
  Age: 64 Year
  Sex: Female
  Weight: 65 kg

DRUGS (4)
  1. NICOTINE [Suspect]
     Indication: SMOKING CESSATION THERAPY
     Dosage: 21 MG, QD, TRANSDERMAL
     Route: 062
     Dates: start: 20080214, end: 20080306
  2. ANTIDEPRESSANTS (NO INGREDIENTS/SUBSTANCES) [Concomitant]
  3. ANAFRANIL [Concomitant]
  4. LITHIUM CARBONATE [Concomitant]

REACTIONS (6)
  - ANOREXIA [None]
  - CONDITION AGGRAVATED [None]
  - DEPRESSION [None]
  - FATIGUE [None]
  - PALPITATIONS [None]
  - RESTLESSNESS [None]
